FAERS Safety Report 5136312-6 (Version None)
Quarter: 2006Q4

REPORT INFORMATION
  Report Type: 
  Country: None (occurrence: None)
  Receive Date: 20061027
  Receipt Date: 20061019
  Transmission Date: 20070319
  Serious: Yes (Disabling)
  Sender: FDA-Public Use
  Company Number: PT-GLAXOSMITHKLINE-B0443489A

PATIENT
  Age: 71 Year
  Sex: Male

DRUGS (6)
  1. DUTASTERIDE [Suspect]
     Indication: BENIGN PROSTATIC HYPERPLASIA
     Dosage: .5MG PER DAY
     Route: 048
     Dates: start: 20040908
  2. LORTAAN PLUS [Concomitant]
     Indication: HYPERTENSION
     Dosage: 50MG TWICE PER DAY
     Route: 048
     Dates: start: 20020101
  3. SIMVASTATIN [Concomitant]
     Dosage: 20MG PER DAY
     Dates: start: 20020101
  4. GLIMEPIRIDE [Concomitant]
     Dosage: 2MG PER DAY
     Route: 048
  5. ALLOPURINOL [Concomitant]
     Dosage: 300MG PER DAY
     Route: 048
     Dates: start: 20040101
  6. ANTIHYPERTENSIVES [Concomitant]

REACTIONS (3)
  - BALANCE DISORDER [None]
  - DIZZINESS [None]
  - VISION BLURRED [None]
